FAERS Safety Report 17440764 (Version 1)
Quarter: 2020Q1

REPORT INFORMATION
  Report Type: Spontaneous
  Country: IN (occurrence: IN)
  Receive Date: 20200220
  Receipt Date: 20200220
  Transmission Date: 20200409
  Serious: Yes (Other)
  Sender: FDA-Public Use
  Company Number: IN-PFIZER INC-2020071864

PATIENT
  Age: 70 Year
  Sex: Female

DRUGS (2)
  1. LETROZOLE. [Concomitant]
     Active Substance: LETROZOLE
     Dosage: 2.5 MG, 1X/DAY
     Dates: start: 20190707
  2. PALBACE [Suspect]
     Active Substance: PALBOCICLIB
     Indication: BREAST CANCER METASTATIC
     Dosage: 125 MG, 1X/DAY
     Route: 048
     Dates: start: 20190730

REACTIONS (2)
  - Biliary dilatation [Unknown]
  - Osteopenia [Unknown]

NARRATIVE: CASE EVENT DATE: 20200123
